FAERS Safety Report 6287724-9 (Version None)
Quarter: 2009Q3

REPORT INFORMATION
  Report Type: 
  Country: None (occurrence: None)
  Receive Date: 20090727
  Receipt Date: 20090727
  Transmission Date: 20100115
  Serious: No
  Sender: FDA-Public Use
  Company Number: None

PATIENT
  Age: 61 Year
  Sex: Female
  Weight: 59.6 kg

DRUGS (1)
  1. DOPAMINE HCL [Suspect]
     Indication: HYPOTENSION
     Dosage: 20 MCG/KG/MIN, CONTINUOUS, IV DRIP
     Route: 041

REACTIONS (4)
  - BLOOD PRESSURE SYSTOLIC DECREASED [None]
  - CHEST PAIN [None]
  - PRODUCT ODOUR ABNORMAL [None]
  - PRODUCT QUALITY ISSUE [None]
